FAERS Safety Report 24620731 (Version 1)
Quarter: 2024Q4

REPORT INFORMATION
  Report Type: Spontaneous
  Country: AT (occurrence: AT)
  Receive Date: 20241114
  Receipt Date: 20241114
  Transmission Date: 20250115
  Serious: Yes (Other)
  Sender: ABBVIE
  Company Number: AT-ABBVIE-6002935

PATIENT
  Age: 74 Year
  Sex: Male

DRUGS (1)
  1. RINVOQ [Suspect]
     Active Substance: UPADACITINIB
     Indication: Rheumatoid arthritis
     Route: 048
     Dates: start: 202107, end: 202108

REACTIONS (4)
  - Pulmonary septal thickening [Unknown]
  - Cough [Unknown]
  - Pulmonary function test decreased [Unknown]
  - Lung opacity [Unknown]
